FAERS Safety Report 21522289 (Version 1)
Quarter: 2022Q4

REPORT INFORMATION
  Report Type: Report from Study
  Country: US (occurrence: US)
  Receive Date: 20221028
  Receipt Date: 20221028
  Transmission Date: 20230112
  Serious: Yes (Death)
  Sender: FDA-Public Use
  Company Number: US-CHIESI-2022CHF05603

PATIENT

DRUGS (2)
  1. KENGREAL [Suspect]
     Active Substance: CANGRELOR
     Indication: Product used for unknown indication
     Dosage: 30 MICROGRAM/KILOGRAM, (1X)
     Route: 040
     Dates: start: 20220911, end: 20220912
  2. KENGREAL [Suspect]
     Active Substance: CANGRELOR
     Dosage: UNK
     Route: 042
     Dates: start: 20220911, end: 20220912

REACTIONS (4)
  - Traumatic liver injury [Fatal]
  - Retroperitoneal haemorrhage [Fatal]
  - Off label use [Recovered/Resolved]
  - Off label use [Recovered/Resolved]

NARRATIVE: CASE EVENT DATE: 20220911
